FAERS Safety Report 17842557 (Version 1)
Quarter: 2020Q2

REPORT INFORMATION
  Report Type: Spontaneous
  Country: DE (occurrence: DE)
  Receive Date: 20200529
  Receipt Date: 20200529
  Transmission Date: 20200714
  Serious: Yes (Hospitalization, Other)
  Sender: FDA-Public Use
  Company Number: DE-AUROBINDO-AUR-APL-2017-45936

PATIENT
  Age: 20 Year
  Sex: Male
  Weight: 62 kg

DRUGS (9)
  1. LAMPRENE [Suspect]
     Active Substance: CLOFAZIMINE
     Indication: PULMONARY TUBERCULOSIS
     Dosage: 100 MILLIGRAM, ONCE A DAY
     Route: 048
     Dates: start: 20161101
  2. TERIZIDONA [Suspect]
     Active Substance: TERIZIDONE
     Indication: PULMONARY TUBERCULOSIS
     Dosage: 250 MILLIGRAM, 3 TIMES A DAY
     Route: 048
     Dates: start: 20160324
  3. DELTYBA [Suspect]
     Active Substance: DELAMANID
     Indication: PULMONARY TUBERCULOSIS
     Dosage: 100 MILLIGRAM, TWO TIMES A DAY
     Route: 048
     Dates: start: 20161026
  4. TERIZIDONA [Suspect]
     Active Substance: TERIZIDONE
     Dosage: 750 MILLIGRAM, ONCE A DAY
     Route: 048
     Dates: start: 20160324
  5. PANTOZOL [Concomitant]
     Active Substance: PANTOPRAZOLE SODIUM
     Indication: PROPHYLAXIS
     Dosage: 40 MILLIGRAM, ONCE A DAY
     Route: 048
     Dates: start: 20161025
  6. MOXIFLOXACIN. [Suspect]
     Active Substance: MOXIFLOXACIN
     Indication: PULMONARY TUBERCULOSIS
     Dosage: 400 MILLIGRAM, ONCE A DAY
     Route: 048
     Dates: start: 20160324
  7. LINEZOLID FILM COATED TABLET [Suspect]
     Active Substance: LINEZOLID
     Indication: PULMONARY TUBERCULOSIS
     Dosage: 300 MILLIGRAM, ONCE A DAY
     Route: 048
     Dates: start: 20160324
  8. CLOFAZIMINE [Suspect]
     Active Substance: CLOFAZIMINE
     Indication: PULMONARY TUBERCULOSIS
     Dosage: 100 MILLIGRAM, ONCE A DAY
     Route: 048
     Dates: start: 20161101
  9. DELTYBA [Suspect]
     Active Substance: DELAMANID
     Dosage: 100 MILLIGRAM, ONCE A DAY
     Route: 048
     Dates: start: 20170616

REACTIONS (8)
  - Acne [Recovered/Resolved]
  - Tinnitus [Not Recovered/Not Resolved]
  - Underdose [Unknown]
  - Off label use [Unknown]
  - Dry mouth [Recovered/Resolved]
  - Autonomic nervous system imbalance [Recovered/Resolved]
  - Alopecia [Recovered/Resolved]
  - Incorrect product administration duration [Unknown]

NARRATIVE: CASE EVENT DATE: 20161029
